FAERS Safety Report 17388789 (Version 4)
Quarter: 2020Q2

REPORT INFORMATION
  Report Type: Spontaneous
  Country: US (occurrence: US)
  Receive Date: 20200207
  Receipt Date: 20200527
  Transmission Date: 20200713
  Serious: Yes (Other)
  Sender: FDA-Public Use
  Company Number: US-PFIZER INC-2020052696

PATIENT
  Age: 68 Year
  Sex: Male

DRUGS (3)
  1. DILANTIN [Suspect]
     Active Substance: PHENYTOIN
     Dosage: 400 MG, DAILY (4 X 100MG CAPSULES DAILY, AT NIGHT TIME)
  2. TYLENOL [Suspect]
     Active Substance: ACETAMINOPHEN
     Indication: NASOPHARYNGITIS
     Dosage: UNK
  3. DILANTIN [Suspect]
     Active Substance: PHENYTOIN
     Dosage: 100 MG, 4X/DAY

REACTIONS (15)
  - Seizure [Unknown]
  - Oropharyngeal pain [Unknown]
  - Blood test abnormal [Unknown]
  - Feeling drunk [Unknown]
  - Insomnia [Unknown]
  - Photosensitivity reaction [Unknown]
  - Neurological symptom [Unknown]
  - Weight decreased [Unknown]
  - Cerebral disorder [Unknown]
  - Bone density decreased [Unknown]
  - Suicidal behaviour [Unknown]
  - Head injury [Unknown]
  - Thinking abnormal [Unknown]
  - Suicidal ideation [Unknown]
  - Cognitive disorder [Unknown]
